FAERS Safety Report 19761032 (Version 1)
Quarter: 2021Q3

REPORT INFORMATION
  Report Type: Spontaneous
  Country: US (occurrence: US)
  Receive Date: 20210827
  Receipt Date: 20210827
  Transmission Date: 20211014
  Serious: Yes (Life-Threatening)
  Sender: FDA-Public Use
  Company Number: None

PATIENT
  Age: 56 Year
  Sex: Male
  Weight: 134 kg

DRUGS (13)
  1. CEFEPIME [Concomitant]
     Active Substance: CEFEPIME HYDROCHLORIDE
     Dates: start: 20210819, end: 20210823
  2. NOREPINEPHRINE. [Concomitant]
     Active Substance: NOREPINEPHRINE
     Dates: start: 20210818, end: 20210822
  3. FENTANYL DRIP [Concomitant]
     Dates: start: 20210818
  4. APIXABAN [Concomitant]
     Active Substance: APIXABAN
     Dates: start: 20210820
  5. VANCOMYCIN [Concomitant]
     Active Substance: VANCOMYCIN
     Dates: start: 20210819, end: 20210821
  6. ENOXAPARIN [Concomitant]
     Active Substance: ENOXAPARIN
     Dates: start: 20210818, end: 20210820
  7. REMDESIVIR. [Concomitant]
     Active Substance: REMDESIVIR
     Dates: start: 20210818, end: 20210821
  8. BARICITINIB. [Suspect]
     Active Substance: BARICITINIB
     Indication: COVID-19
     Dosage: ?          OTHER ROUTE:NG TUBE?
     Dates: start: 20210818, end: 20210825
  9. DEXAMETHASONE. [Concomitant]
     Active Substance: DEXAMETHASONE
     Dates: start: 20210819, end: 20210825
  10. PROPOFOL DRIP [Concomitant]
     Active Substance: PROPOFOL
     Dates: start: 20210818
  11. PRECEDEX [Concomitant]
     Active Substance: DEXMEDETOMIDINE HYDROCHLORIDE
     Dates: start: 20210821
  12. FAMOTIDINE. [Concomitant]
     Active Substance: FAMOTIDINE
     Dates: start: 20210819
  13. FUROSEMIDE. [Concomitant]
     Active Substance: FUROSEMIDE
     Dates: start: 20210821

REACTIONS (1)
  - Pulmonary embolism [None]

NARRATIVE: CASE EVENT DATE: 20210820
